FAERS Safety Report 10278334 (Version 1)
Quarter: 2014Q3

REPORT INFORMATION
  Report Type: Report from Study
  Country: CA (occurrence: CA)
  Receive Date: 20140704
  Receipt Date: 20140704
  Transmission Date: 20150326
  Serious: Yes (Death)
  Sender: FDA-Public Use
  Company Number: PHHY2014CA082367

PATIENT
  Sex: Male

DRUGS (2)
  1. SANDOSTATIN LAR DEPOT [Suspect]
     Active Substance: OCTREOTIDE ACETATE
     Indication: CHOLANGIOCARCINOMA
     Dosage: 20 MG, EVERY 4 WEEKS
     Route: 030
     Dates: start: 20130711, end: 20130807
  2. SANDOSTATIN LAR DEPOT [Suspect]
     Active Substance: OCTREOTIDE ACETATE
     Indication: OFF LABEL USE

REACTIONS (1)
  - Death [Fatal]
